FAERS Safety Report 15210864 (Version 1)
Quarter: 2018Q3

REPORT INFORMATION
  Report Type: Report from Study
  Country: EG (occurrence: EG)
  Receive Date: 20180728
  Receipt Date: 20180728
  Transmission Date: 20181010
  Serious: Yes (Hospitalization)
  Sender: FDA-Public Use
  Company Number: EG-SAKK-2018SA202079AA

PATIENT
  Age: 7 Year
  Sex: Female

DRUGS (2)
  1. ACTRAPID [INSULIN HUMAN] [Concomitant]
     Dosage: 10 UNK, TID
  2. INSULIN GLARGINE [Suspect]
     Active Substance: INSULIN GLARGINE
     Indication: TYPE 1 DIABETES MELLITUS
     Dosage: 20 IU, QD
     Route: 058
     Dates: start: 20170709

REACTIONS (2)
  - Hyperglycaemia [Recovered/Resolved]
  - Ketonuria [Recovered/Resolved]

NARRATIVE: CASE EVENT DATE: 20180701
